FAERS Safety Report 18877378 (Version 1)
Quarter: 2021Q1

REPORT INFORMATION
  Report Type: Other
  Country: US (occurrence: US)
  Receive Date: 20210211
  Receipt Date: 20210211
  Transmission Date: 20210420
  Serious: Yes (Hospitalization)
  Sender: FDA-Public Use
  Company Number: US-ROCHE-2766312

PATIENT
  Age: 77 Year
  Sex: Male

DRUGS (2)
  1. NICARDIPINE [Concomitant]
     Active Substance: NICARDIPINE
     Indication: BLOOD PRESSURE MANAGEMENT
     Route: 042
  2. ACTILYSE [Suspect]
     Active Substance: ALTEPLASE
     Indication: ISCHAEMIC STROKE
     Dosage: 0.9 MG/KG DOSE  FREQUENCY: 1, FREQUENCY UNIT: 809
     Route: 042

REACTIONS (3)
  - Haemorrhage intracranial [Recovering/Resolving]
  - NIH stroke scale score increased [Recovering/Resolving]
  - Haematoma [Recovering/Resolving]
